FAERS Safety Report 10264047 (Version 1)
Quarter: 2014Q2

REPORT INFORMATION
  Report Type: Spontaneous
  Country: US (occurrence: US)
  Receive Date: 20140627
  Receipt Date: 20140627
  Transmission Date: 20141212
  Serious: No
  Sender: FDA-Public Use
  Company Number: US-BIOGENIDEC-2014BI061201

PATIENT
  Sex: Female

DRUGS (1)
  1. AVONEX [Suspect]
     Indication: MULTIPLE SCLEROSIS
     Route: 030
     Dates: start: 20100123, end: 2012

REACTIONS (4)
  - Multiple sclerosis [Unknown]
  - Irritable bowel syndrome [Not Recovered/Not Resolved]
  - Glaucoma [Not Recovered/Not Resolved]
  - Diarrhoea [Recovered/Resolved]
